FAERS Safety Report 10994020 (Version 2)
Quarter: 2015Q2

REPORT INFORMATION
  Report Type: Spontaneous
  Country: IT (occurrence: IT)
  Receive Date: 20150407
  Receipt Date: 20150415
  Transmission Date: 20150821
  Serious: Yes (Death)
  Sender: FDA-Public Use
  Company Number: IT-TEVA-552408ACC

PATIENT
  Age: 72 Year
  Sex: Female

DRUGS (1)
  1. PACLITAXEL. [Suspect]
     Active Substance: PACLITAXEL
     Indication: BREAST CANCER
     Dates: start: 20150310, end: 20150310

REACTIONS (3)
  - Leukopenia [Fatal]
  - Acute respiratory failure [Fatal]
  - Pleural effusion [Fatal]

NARRATIVE: CASE EVENT DATE: 20150313
